FAERS Safety Report 20103165 (Version 4)
Quarter: 2022Q1

REPORT INFORMATION
  Report Type: Spontaneous
  Country: MX (occurrence: MX)
  Receive Date: 20211123
  Receipt Date: 20220110
  Transmission Date: 20220423
  Serious: Yes (Other)
  Sender: FDA-Public Use
  Company Number: MX-ALLERGAN-2136947US

PATIENT
  Sex: Female

DRUGS (10)
  1. BOTOX [Interacting]
     Active Substance: ONABOTULINUMTOXINA
     Indication: Skin wrinkling
     Dosage: 5 UNITS, SINGLE
     Route: 030
     Dates: start: 20210310, end: 20210310
  2. BOTOX [Interacting]
     Active Substance: ONABOTULINUMTOXINA
     Indication: Skin wrinkling
     Dosage: 8 UNK, SINGLE
     Route: 030
     Dates: start: 20210310, end: 20210310
  3. BOTOX [Interacting]
     Active Substance: ONABOTULINUMTOXINA
     Indication: Skin wrinkling
     Dosage: 6 UNITS, SINGLE
     Route: 030
     Dates: start: 20210310, end: 20210310
  4. BOTOX [Interacting]
     Active Substance: ONABOTULINUMTOXINA
     Dosage: 6 UNITS, SINGLE
     Route: 030
     Dates: start: 20210310, end: 20210310
  5. VITAMIN B COMPLEX [Interacting]
     Active Substance: CYANOCOBALAMIN\DEXPANTHENOL\NIACINAMIDE\PYRIDOXINE HYDROCHLORIDE\RIBOFLAVIN 5^-PHOSPHATE SODIUM\THIA
     Indication: Product used for unknown indication
     Dosage: UNK
  6. AMITRIPTYLINE [Suspect]
     Active Substance: AMITRIPTYLINE
     Indication: Product used for unknown indication
     Dosage: UNK
     Dates: end: 20210615
  7. COLLAGEN [Interacting]
     Active Substance: COLLAGEN
     Indication: Product used for unknown indication
     Dosage: UNK
  8. HYALURONIC ACID [Suspect]
     Active Substance: HYALURONIC ACID
     Indication: Lip cosmetic procedure
     Dosage: UNK UNK, SINGLE
     Dates: start: 20200701, end: 20200701
  9. HYALURONIC ACID [Suspect]
     Active Substance: HYALURONIC ACID
     Dosage: UNK
     Dates: start: 20200615, end: 20200615
  10. HYALURONIC ACID\LIDOCAINE HYDROCHLORIDE [Suspect]
     Active Substance: HYALURONIC ACID\LIDOCAINE HYDROCHLORIDE
     Indication: Product used for unknown indication
     Dosage: UNK UNK, SINGLE
     Dates: start: 20201207, end: 20201207

REACTIONS (41)
  - Bone lesion excision [Unknown]
  - Toxicity to various agents [Unknown]
  - Loss of consciousness [Unknown]
  - Ocular hyperaemia [Not Recovered/Not Resolved]
  - Anxiety [Not Recovered/Not Resolved]
  - Tachycardia [Not Recovered/Not Resolved]
  - Blood pressure fluctuation [Not Recovered/Not Resolved]
  - Discomfort [Not Recovered/Not Resolved]
  - Dehydration [Not Recovered/Not Resolved]
  - Food intolerance [Recovering/Resolving]
  - Wrong technique in product usage process [Unknown]
  - Dry skin [Not Recovered/Not Resolved]
  - Drug intolerance [Unknown]
  - Drug interaction [Not Recovered/Not Resolved]
  - Muscle hypertrophy [Not Recovered/Not Resolved]
  - Trigeminal neuralgia [Not Recovered/Not Resolved]
  - Eye movement disorder [Not Recovered/Not Resolved]
  - Yellow skin [Not Recovered/Not Resolved]
  - Injection site dryness [Not Recovered/Not Resolved]
  - Injection site reaction [Unknown]
  - Muscle contracture [Not Recovered/Not Resolved]
  - Protein intolerance [Not Recovered/Not Resolved]
  - Body dysmorphic disorder [Unknown]
  - Rhinitis [Unknown]
  - Bulimia nervosa [Unknown]
  - Skin disorder [Unknown]
  - Weight increased [Unknown]
  - Insomnia [Unknown]
  - Influenza like illness [Not Recovered/Not Resolved]
  - Dysphonia [Unknown]
  - Eye pain [Not Recovered/Not Resolved]
  - Face oedema [Not Recovered/Not Resolved]
  - Hypersensitivity [Unknown]
  - Headache [Not Recovered/Not Resolved]
  - Vision blurred [Not Recovered/Not Resolved]
  - Injection site pain [Not Recovered/Not Resolved]
  - Fatigue [Not Recovered/Not Resolved]
  - Nausea [Not Recovered/Not Resolved]
  - Syncope [Not Recovered/Not Resolved]
  - Decreased appetite [Unknown]
  - Dyspnoea [Unknown]

NARRATIVE: CASE EVENT DATE: 20210310
